FAERS Safety Report 6456787-X (Version None)
Quarter: 2009Q4

REPORT INFORMATION
  Report Type: 
  Country: None (occurrence: None)
  Receive Date: 20091125
  Receipt Date: 20091116
  Transmission Date: 20100525
  Serious: Yes (Other)
  Sender: FDA-Public Use
  Company Number: US-ROCHE-596608

PATIENT
  Sex: Female
  Weight: 57.2 kg

DRUGS (3)
  1. CAPECITABINE [Suspect]
     Indication: BREAST CANCER
     Route: 048
  2. CAPECITABINE [Suspect]
     Dosage: STRENGTH: 500 AND 150 MG; DOSE INCREASED; 2 WEEK ON AND 1 WEEK OFF
     Route: 048
     Dates: start: 20080101
  3. CAPECITABINE [Suspect]
     Dosage: STRENGTH: 500 MG AND 150 MG, TAKEN 500 MG AM/PM AND 300 MG AM/PM.
     Route: 048
     Dates: start: 20090101, end: 20090911

REACTIONS (9)
  - BACK PAIN [None]
  - DIARRHOEA [None]
  - EYE HAEMORRHAGE [None]
  - NAIL DISORDER [None]
  - NEUTROPHIL COUNT DECREASED [None]
  - PAIN IN EXTREMITY [None]
  - PARAESTHESIA [None]
  - POLLAKIURIA [None]
  - WHITE BLOOD CELL COUNT DECREASED [None]
